FAERS Safety Report 12650644 (Version 3)
Quarter: 2016Q4

REPORT INFORMATION
  Report Type: Spontaneous
  Country: US (occurrence: US)
  Receive Date: 20160815
  Receipt Date: 20161116
  Transmission Date: 20170207
  Serious: No
  Sender: FDA-Public Use
  Company Number: US-ASTRAZENECA-2016SE85139

PATIENT
  Age: 72 Year
  Sex: Female

DRUGS (1)
  1. TAGRISSO [Suspect]
     Active Substance: OSIMERTINIB
     Indication: SMALL CELL LUNG CANCER
     Route: 048
     Dates: start: 201604

REACTIONS (1)
  - Rash [Unknown]

NARRATIVE: CASE EVENT DATE: 201606
